FAERS Safety Report 24579575 (Version 1)
Quarter: 2024Q4

REPORT INFORMATION
  Report Type: Spontaneous
  Country: US (occurrence: US)
  Receive Date: 20241105
  Receipt Date: 20241105
  Transmission Date: 20250115
  Serious: Yes (Disabling)
  Sender: ABBVIE
  Company Number: US-ABBVIE-5985923

PATIENT
  Sex: Male

DRUGS (1)
  1. REFRESH PLUS [Suspect]
     Active Substance: CARBOXYMETHYLCELLULOSE SODIUM
     Indication: Dry eye
     Dosage: CMC 5MG/ML SOL UD (8197X)
     Route: 047

REACTIONS (3)
  - Blindness [Unknown]
  - Product packaging quantity issue [Not Recovered/Not Resolved]
  - Eye irritation [Unknown]
